FAERS Safety Report 19029988 (Version 1)
Quarter: 2021Q1

REPORT INFORMATION
  Report Type: Spontaneous
  Country: DE (occurrence: DE)
  Receive Date: 20210319
  Receipt Date: 20210319
  Transmission Date: 20210420
  Serious: Yes (Hospitalization)
  Sender: FDA-Public Use
  Company Number: DE-SUN PHARMACEUTICAL INDUSTRIES LTD-2021RR-286468

PATIENT
  Age: 36 Year
  Sex: Female
  Weight: 96 kg

DRUGS (2)
  1. OMEPRAZOLE. [Suspect]
     Active Substance: OMEPRAZOLE
     Indication: PRODUCT USED FOR UNKNOWN INDICATION
     Dosage: 40 MG, 1?0?0?0
     Route: 065
  2. LEVOTHYROXINE SODIUM. [Concomitant]
     Active Substance: LEVOTHYROXINE SODIUM
     Indication: PRODUCT USED FOR UNKNOWN INDICATION
     Dosage: 100 MICROG, 1?0?0?0
     Route: 065

REACTIONS (9)
  - Dizziness [Unknown]
  - Weight decreased [Unknown]
  - Anaemia vitamin B12 deficiency [Unknown]
  - Palpitations [Unknown]
  - Anaemia folate deficiency [Unknown]
  - Tachycardia [Unknown]
  - Dyspnoea exertional [Unknown]
  - Anaemia [Unknown]
  - Hyperchromic anaemia [Unknown]

NARRATIVE: CASE EVENT DATE: 20201224
